FAERS Safety Report 10223383 (Version 1)
Quarter: 2014Q2

REPORT INFORMATION
  Report Type: Spontaneous
  Country: US (occurrence: None)
  Receive Date: 20140606
  Receipt Date: 20140606
  Transmission Date: 20141212
  Serious: Yes (Other)
  Sender: FDA-Public Use
  Company Number: None

PATIENT
  Age: 64 Year
  Sex: Female

DRUGS (3)
  1. METRONIDAZOLE [Suspect]
     Indication: FOOD POISONING
     Dosage: METRONIDAZOLE, TID, INTRAVENOUS
     Route: 042
     Dates: start: 20121015, end: 20121015
  2. CIPROFLOXACIN [Concomitant]
  3. APAP [Concomitant]

REACTIONS (3)
  - Chest pain [None]
  - Dyspnoea [None]
  - Infusion related reaction [None]
